FAERS Safety Report 19609694 (Version 1)
Quarter: 2021Q3

REPORT INFORMATION
  Report Type: Spontaneous
  Country: US (occurrence: US)
  Receive Date: 20210726
  Receipt Date: 20210726
  Transmission Date: 20211014
  Serious: Yes (Hospitalization)
  Sender: FDA-Public Use
  Company Number: None

PATIENT
  Sex: Female
  Weight: 84.6 kg

DRUGS (11)
  1. ZETIA [Concomitant]
     Active Substance: EZETIMIBE
  2. TORESEMIDE [Concomitant]
     Active Substance: TORSEMIDE
  3. WARFARIN [Concomitant]
     Active Substance: WARFARIN
  4. GLIPIZIDE. [Concomitant]
     Active Substance: GLIPIZIDE
  5. KLOR?CON [Concomitant]
     Active Substance: POTASSIUM CHLORIDE
  6. NEURONTIN [Concomitant]
     Active Substance: GABAPENTIN
  7. ALLOPURINOL. [Concomitant]
     Active Substance: ALLOPURINOL
  8. JANUVIA [Concomitant]
     Active Substance: SITAGLIPTIN PHOSPHATE
  9. VALIUM [Concomitant]
     Active Substance: DIAZEPAM
  10. TASIGNA [Suspect]
     Active Substance: NILOTINIB
     Indication: CHRONIC MYELOID LEUKAEMIA
     Route: 048
  11. SPIRONOLACTONE. [Concomitant]
     Active Substance: SPIRONOLACTONE

REACTIONS (1)
  - Hospitalisation [None]
